FAERS Safety Report 15081836 (Version 2)
Quarter: 2018Q2

REPORT INFORMATION
  Report Type: Spontaneous
  Country: US (occurrence: US)
  Receive Date: 20180628
  Receipt Date: 20180629
  Transmission Date: 20180711
  Serious: No
  Sender: FDA-Public Use
  Company Number: US-PFIZER INC-2018260097

PATIENT
  Age: 73 Year
  Sex: Female
  Weight: 68.49 kg

DRUGS (1)
  1. NITROGLYCERIN. [Suspect]
     Active Substance: NITROGLYCERIN
     Dosage: UNK
     Dates: start: 201709

REACTIONS (3)
  - Poor quality drug administered [Unknown]
  - Product storage error [Unknown]
  - Oral discomfort [Unknown]
